FAERS Safety Report 10753774 (Version 1)
Quarter: 2015Q1

REPORT INFORMATION
  Report Type: Spontaneous
  Country: US (occurrence: None)
  Receive Date: 20150129
  Receipt Date: 20150129
  Transmission Date: 20150721
  Serious: No
  Sender: FDA-Public Use
  Company Number: None

PATIENT
  Age: 49 Year
  Sex: Female
  Weight: 83.01 kg

DRUGS (18)
  1. LORAZEPAM. [Concomitant]
     Active Substance: LORAZEPAM
  2. WARFARIN [Concomitant]
     Active Substance: WARFARIN
  3. LOVASTATIN. [Concomitant]
     Active Substance: LOVASTATIN
  4. TOPIRAMATE SUN PHARMA [Suspect]
     Active Substance: TOPIRAMATE
     Indication: MOOD SWINGS
     Dosage: 2 TABS BY MOUTH NIGHTLY
     Route: 048
     Dates: start: 20141204, end: 20141208
  5. ZOPHRAN [Concomitant]
  6. TOPIRAMATE SUN PHARMA [Suspect]
     Active Substance: TOPIRAMATE
     Indication: MIGRAINE
     Dosage: 2 TABS BY MOUTH NIGHTLY
     Route: 048
     Dates: start: 20141204, end: 20141208
  7. DEXILANT [Concomitant]
     Active Substance: DEXLANSOPRAZOLE
  8. LAMICIBALT [Concomitant]
  9. 75/25 INSULIN [Concomitant]
  10. VIT D+3 [Concomitant]
  11. CYMBALTA [Concomitant]
     Active Substance: DULOXETINE HYDROCHLORIDE
  12. TOPIRAMATE SUN PHARMA [Suspect]
     Active Substance: TOPIRAMATE
     Indication: WEIGHT CONTROL
     Dosage: 2 TABS BY MOUTH NIGHTLY
     Route: 048
     Dates: start: 20141204, end: 20141208
  13. TRAMADOL [Concomitant]
     Active Substance: TRAMADOL
  14. TOPIRAMATE SUN PHARMA [Suspect]
     Active Substance: TOPIRAMATE
     Indication: BIPOLAR DISORDER
     Dosage: 2 TABS BY MOUTH NIGHTLY
     Route: 048
     Dates: start: 20141204, end: 20141208
  15. TOPIRAMATE SUN PHARMA [Suspect]
     Active Substance: TOPIRAMATE
     Indication: BLOOD GLUCOSE INCREASED
     Dosage: 2 TABS BY MOUTH NIGHTLY
     Route: 048
     Dates: start: 20141204, end: 20141208
  16. TOPAMAX [Concomitant]
     Active Substance: TOPIRAMATE
  17. ZYRTEC [Concomitant]
     Active Substance: CETIRIZINE HYDROCHLORIDE
  18. NORCO [Concomitant]
     Active Substance: ACETAMINOPHEN\HYDROCODONE BITARTRATE

REACTIONS (5)
  - Affective disorder [None]
  - Blood glucose increased [None]
  - Anger [None]
  - No therapeutic response [None]
  - Migraine [None]

NARRATIVE: CASE EVENT DATE: 20141204
